FAERS Safety Report 5894592-3 (Version None)
Quarter: 2008Q3

REPORT INFORMATION
  Report Type: 
  Country: None (occurrence: None)
  Receive Date: 20080922
  Receipt Date: 20080915
  Transmission Date: 20090109
  Serious: Yes (Death, Other)
  Sender: FDA-Public Use
  Company Number: 2008AL010235

PATIENT
  Age: 75 Year
  Sex: Female
  Weight: 53.0709 kg

DRUGS (21)
  1. DIGOXIN [Suspect]
     Indication: ATRIAL FIBRILLATION
     Dosage: 0.125 MG, DAILY, PO
     Route: 048
     Dates: start: 20071224
  2. DIGOXIN [Suspect]
     Indication: ATRIAL FIBRILLATION
     Dosage: 0.25MG, PO
     Route: 048
  3. BENICAR [Suspect]
     Dosage: 20 MG DAILY
     Dates: start: 20080330, end: 20080422
  4. SINGULAIR [Concomitant]
  5. EVISTA [Concomitant]
  6. CLARITIN [Concomitant]
  7. LEVOXYL [Concomitant]
  8. ZOLOFT [Concomitant]
  9. CARTIA XT [Concomitant]
  10. LYRICA [Concomitant]
  11. PREDNISONE [Concomitant]
  12. ALUTEROL SULFATE [Concomitant]
  13. SOIRIVA [Concomitant]
  14. PROTONIX [Concomitant]
  15. ASPIRIN [Concomitant]
  16. ADVAIR HFA [Concomitant]
  17. XANAX [Concomitant]
  18. MUPIROCIN [Concomitant]
  19. OMEPRAZOLE [Concomitant]
  20. LORATADINE [Concomitant]
  21. HYDROCODONE BITARTRATE [Concomitant]

REACTIONS (17)
  - ALOPECIA [None]
  - ANURIA [None]
  - ANXIETY [None]
  - ASTHENIA [None]
  - BLOOD GLUCOSE ABNORMAL [None]
  - CHRONIC OBSTRUCTIVE PULMONARY DISEASE [None]
  - DECREASED APPETITE [None]
  - FATIGUE [None]
  - HYPERSOMNIA [None]
  - HYPERTENSION [None]
  - HYPOTENSION [None]
  - NAUSEA [None]
  - OEDEMA [None]
  - TREMOR [None]
  - URINARY TRACT INFECTION [None]
  - VOMITING [None]
  - WEIGHT DECREASED [None]
